FAERS Safety Report 15889439 (Version 5)
Quarter: 2019Q4

REPORT INFORMATION
  Report Type: Spontaneous
  Country: CA (occurrence: CA)
  Receive Date: 20190130
  Receipt Date: 20191120
  Transmission Date: 20200122
  Serious: Yes (Hospitalization, Other)
  Sender: FDA-Public Use
  Company Number: CA-OTSUKA-2015_009670

PATIENT
  Age: 0 Year
  Sex: Male
  Weight: 2 kg

DRUGS (11)
  1. BUPRENORPHINE HYDROCHLORIDE. [Suspect]
     Active Substance: BUPRENORPHINE HYDROCHLORIDE
     Dosage: 22 MG, QD
     Route: 064
     Dates: start: 201407
  2. BUPRENORPHINE HYDROCHLORIDE. [Suspect]
     Active Substance: BUPRENORPHINE HYDROCHLORIDE
     Dosage: 22 MG, QD
     Route: 063
     Dates: start: 201503
  3. BUPRENORPHINE HYDROCHLORIDE. [Suspect]
     Active Substance: BUPRENORPHINE HYDROCHLORIDE
     Indication: PRODUCT USED FOR UNKNOWN INDICATION
     Dosage: UNK
     Route: 064
  4. BUPRENORPHINE HYDROCHLORIDE W/NALOXONE HCL [Suspect]
     Active Substance: BUPRENORPHINE HYDROCHLORIDE\NALOXONE HYDROCHLORIDE
     Indication: PRODUCT USED FOR UNKNOWN INDICATION
     Dosage: UNK
     Route: 064
  5. DIAZEPAM. [Suspect]
     Active Substance: DIAZEPAM
     Indication: PRODUCT USED FOR UNKNOWN INDICATION
     Dosage: 40 MG, QD
     Route: 064
     Dates: start: 201407, end: 201503
  6. VYVANSE [Suspect]
     Active Substance: LISDEXAMFETAMINE DIMESYLATE
     Indication: PRODUCT USED FOR UNKNOWN INDICATION
     Dosage: 10 MG, QD
     Route: 064
     Dates: start: 201407, end: 201503
  7. NICOTINE. [Suspect]
     Active Substance: NICOTINE
     Dosage: UNK
     Route: 063
     Dates: start: 20150313
  8. BUPRENORPHINE HYDROCHLORIDE. [Suspect]
     Active Substance: BUPRENORPHINE HYDROCHLORIDE
     Dosage: 16 MG, QD
     Route: 063
     Dates: start: 20150313, end: 20150314
  9. ABILIFY [Suspect]
     Active Substance: ARIPIPRAZOLE
     Indication: PRODUCT USED FOR UNKNOWN INDICATION
     Dosage: 5 MG, QD
     Route: 064
     Dates: start: 201407, end: 201503
  10. BUPRENORPHINE HYDROCHLORIDE. [Suspect]
     Active Substance: BUPRENORPHINE HYDROCHLORIDE
     Indication: DRUG DEPENDENCE
     Dosage: 16 MG, QD
     Route: 064
     Dates: start: 20150205
  11. NICOTINE. [Suspect]
     Active Substance: NICOTINE
     Indication: PRODUCT USED FOR UNKNOWN INDICATION
     Dosage: UNK
     Route: 064
     Dates: start: 201407

REACTIONS (7)
  - Breech presentation [Recovered/Resolved]
  - Foetal exposure during pregnancy [Unknown]
  - Premature baby [Recovered/Resolved]
  - Foetal distress syndrome [Recovered/Resolved]
  - Drug withdrawal syndrome neonatal [Recovered/Resolved]
  - Jaundice neonatal [Recovered/Resolved]
  - Exposure via breast milk [Unknown]

NARRATIVE: CASE EVENT DATE: 201407
